FAERS Safety Report 7781969-4 (Version None)
Quarter: 2011Q3

REPORT INFORMATION
  Report Type: 
  Country: None (occurrence: None)
  Receive Date: 20110927
  Receipt Date: 20110914
  Transmission Date: 20111222
  Serious: Yes (Other)
  Sender: FDA-Public Use
  Company Number: PHHY2011FR74071

PATIENT
  Sex: Female
  Weight: 50 kg

DRUGS (3)
  1. UVEDOSE [Concomitant]
     Dosage: UNK UKN, UNK
  2. HOMEOPATHIC PREPARATION [Concomitant]
     Dosage: UNK UKN, UNK
  3. VALSARTAN [Suspect]
     Indication: HYPERTENSION
     Dosage: 80 MG, DAILY
     Route: 048
     Dates: start: 20100907, end: 20110817

REACTIONS (8)
  - SKIN REACTION [None]
  - SKIN PLAQUE [None]
  - HAEMATOMA [None]
  - MALAISE [None]
  - PRURITUS [None]
  - CONTUSION [None]
  - LOSS OF CONSCIOUSNESS [None]
  - ERYTHEMA [None]
